FAERS Safety Report 8387859-0 (Version None)
Quarter: 2012Q2

REPORT INFORMATION
  Report Type: 
  Country: None (occurrence: None)
  Receive Date: 20120525
  Receipt Date: 20120208
  Transmission Date: 20120825
  Serious: No
  Sender: FDA-Public Use
  Company Number: US-BRISTOL-MYERS SQUIBB COMPANY-16390312

PATIENT
  Age: 48 Year
  Sex: Male

DRUGS (3)
  1. JANUVIA [Suspect]
  2. METFORMIN HCL [Suspect]
  3. KOMBIGLYZE XR [Suspect]

REACTIONS (2)
  - VOMITING [None]
  - NAUSEA [None]
